FAERS Safety Report 9821516 (Version 2)
Quarter: 2014Q1

REPORT INFORMATION
  Report Type: Spontaneous
  Country: US (occurrence: US)
  Receive Date: 20140116
  Receipt Date: 20140116
  Transmission Date: 20141002
  Serious: No
  Sender: FDA-Public Use
  Company Number: US-GILEAD-2011-0036818

PATIENT
  Age: 71 Year
  Sex: Female

DRUGS (15)
  1. LETAIRIS [Suspect]
     Indication: PULMONARY HYPERTENSION
     Route: 048
     Dates: start: 20090929
  2. NITROGLYCERIN [Concomitant]
  3. VENTOLIN [Concomitant]
  4. TORSEMIDE [Concomitant]
  5. WARFARIN [Concomitant]
  6. AMLODIPINE [Concomitant]
  7. METOLAZONE [Concomitant]
  8. METOPROLOL SUCCINATE [Concomitant]
  9. MICARDIS [Concomitant]
  10. SYMBICORT [Concomitant]
  11. NIZATIDINE [Concomitant]
  12. OXYCONTIN [Concomitant]
  13. FLUOXETINE [Concomitant]
  14. KCL [Concomitant]
  15. VITAMIN D [Concomitant]

REACTIONS (5)
  - Paraesthesia [Unknown]
  - Hypoaesthesia [Unknown]
  - Paraesthesia [Unknown]
  - Muscular weakness [Unknown]
  - Oxygen consumption increased [Unknown]
